FAERS Safety Report 4515555-6 (Version None)
Quarter: 2004Q4

REPORT INFORMATION
  Report Type: 
  Country: None (occurrence: None)
  Receive Date: 20041126
  Receipt Date: 20041111
  Transmission Date: 20050328
  Serious: Yes (Disabling, Other)
  Sender: FDA-Public Use
  Company Number: 2004089776

PATIENT
  Age: 45 Year
  Sex: Male
  Weight: 149.687 kg

DRUGS (3)
  1. NEURONTIN [Suspect]
     Indication: NEUROPATHY
     Dates: start: 19990101
  2. GABAPENTIN [Suspect]
     Indication: NEUROPATHY
     Dates: start: 19990101
  3. OXYCODONE HYDROCHLORIDE (OXYCODONE HYDROCHLORIDE) [Concomitant]

REACTIONS (6)
  - BONE DISORDER [None]
  - DIABETES MELLITUS [None]
  - DRUG INEFFECTIVE [None]
  - PAIN IN EXTREMITY [None]
  - PHARMACEUTICAL PRODUCT COMPLAINT [None]
  - UNEXPECTED THERAPEUTIC DRUG EFFECT [None]
